FAERS Safety Report 19395859 (Version 1)
Quarter: 2021Q2

REPORT INFORMATION
  Report Type: Spontaneous
  Country: IN (occurrence: IN)
  Receive Date: 20210609
  Receipt Date: 20210609
  Transmission Date: 20210717
  Serious: Yes (Death, Life-Threatening)
  Sender: FDA-Public Use
  Company Number: IN-TILLOMEDPR-2021-EPL-001786

PATIENT

DRUGS (5)
  1. ACITROM [Concomitant]
     Active Substance: ACENOCOUMAROL
     Indication: MYOCARDIAL INFARCTION
  2. VINGRAF [Suspect]
     Active Substance: TACROLIMUS
     Indication: RENAL TRANSPLANT
     Dosage: 0.5 MILLIGRAM, BID
     Route: 048
     Dates: start: 20180403, end: 20210502
  3. MYCOPHENOLATE MOFETIL. [Suspect]
     Active Substance: MYCOPHENOLATE MOFETIL
     Indication: RENAL TRANSPLANT
     Dosage: 500 MILLIGRAM, BID
     Route: 048
     Dates: start: 20180403, end: 20210502
  4. ECOSPIRIN [Concomitant]
     Active Substance: ASPIRIN
     Indication: ANTIPLATELET THERAPY
     Dosage: PROBABLY 2004
     Route: 048
     Dates: start: 2004, end: 20210502
  5. ACITROM [Concomitant]
     Active Substance: ACENOCOUMAROL
     Indication: ATRIOVENTRICULAR BLOCK
     Dosage: 1 MG ALTERNATE DAYS 0.5 MG
     Route: 048
     Dates: start: 201711, end: 20210502

REACTIONS (2)
  - Dyspnoea [Fatal]
  - Fatigue [Unknown]

NARRATIVE: CASE EVENT DATE: 20210424
